FAERS Safety Report 19721942 (Version 1)
Quarter: 2021Q3

REPORT INFORMATION
  Report Type: Spontaneous
  Country: CN (occurrence: CN)
  Receive Date: 20210818
  Receipt Date: 20210818
  Transmission Date: 20211014
  Serious: Yes (Other)
  Sender: FDA-Public Use
  Company Number: CN-BAXTER-2021BAX025476

PATIENT
  Age: 63 Year
  Sex: Female

DRUGS (4)
  1. VITAMIN B6 [Suspect]
     Active Substance: PYRIDOXINE HYDROCHLORIDE
     Indication: CERVIX CARCINOMA
     Route: 041
     Dates: start: 20210720, end: 20210720
  2. 5% GLUCOSE AND 0.9% SODIUM CHLORIDE INJECTION [Suspect]
     Active Substance: DEXTROSE\SODIUM CHLORIDE
     Indication: CERVIX CARCINOMA
     Route: 041
     Dates: start: 20210720, end: 20210720
  3. VITAMIN C [Suspect]
     Active Substance: ASCORBIC ACID
     Indication: CERVIX CARCINOMA
     Route: 041
     Dates: start: 20210720, end: 20210720
  4. POTASSIUM CHLORIDE. [Suspect]
     Active Substance: POTASSIUM CHLORIDE
     Indication: CERVIX CARCINOMA
     Route: 041
     Dates: start: 20210720, end: 20210720

REACTIONS (3)
  - Chills [Recovering/Resolving]
  - Pyrexia [Recovering/Resolving]
  - Feeling cold [Recovering/Resolving]

NARRATIVE: CASE EVENT DATE: 20210720
